FAERS Safety Report 4296340-X (Version None)
Quarter: 2004Q1

REPORT INFORMATION
  Report Type: 
  Country: None (occurrence: None)
  Receive Date: 20040213
  Receipt Date: 20040213
  Transmission Date: 20041129
  Serious: Yes (Hospitalization)
  Sender: FDA-Public Use
  Company Number: None

PATIENT
  Sex: Female

DRUGS (4)
  1. PERCOCET [Suspect]
     Indication: PAIN
     Dosage: PO X 2 DOSES
     Route: 048
     Dates: start: 20030808
  2. PERCOCET [Suspect]
     Indication: TOOTH EXTRACTION
     Dosage: PO X 2 DOSES
     Route: 048
     Dates: start: 20030808
  3. HYDRALAZINE HCL [Concomitant]
  4. AMOXIL [Concomitant]

REACTIONS (4)
  - DIZZINESS [None]
  - HEADACHE [None]
  - NAUSEA [None]
  - VOMITING [None]
